FAERS Safety Report 19461004 (Version 2)
Quarter: 2021Q3

REPORT INFORMATION
  Report Type: Spontaneous
  Country: US (occurrence: US)
  Receive Date: 20210625
  Receipt Date: 20210723
  Transmission Date: 20211014
  Serious: No
  Sender: FDA-Public Use
  Company Number: US-PFIZER INC-2021689908

PATIENT
  Age: 69 Year
  Sex: Female

DRUGS (4)
  1. CYCLOPAM [ACETAMINOPHEN\DICYCLOMINE] [Suspect]
     Active Substance: ACETAMINOPHEN\DICYCLOMINE
     Dosage: UNK
  2. ROSUVASTATIN. [Concomitant]
     Active Substance: ROSUVASTATIN
     Dosage: UNK
  3. RUXIENCE [Suspect]
     Active Substance: RITUXIMAB-PVVR
     Dosage: UNK
  4. LEXAPRO [Concomitant]
     Active Substance: ESCITALOPRAM OXALATE
     Dosage: UNK

REACTIONS (5)
  - Rash pruritic [Unknown]
  - Rash papular [Unknown]
  - Alopecia [Unknown]
  - Joint swelling [Unknown]
  - Anaemia [Unknown]

NARRATIVE: CASE EVENT DATE: 20210531
